FAERS Safety Report 21722160 (Version 3)
Quarter: 2023Q1

REPORT INFORMATION
  Report Type: Spontaneous
  Country: FR (occurrence: FR)
  Receive Date: 20221213
  Receipt Date: 20230328
  Transmission Date: 20230417
  Serious: Yes (Death, Hospitalization)
  Sender: FDA-Public Use
  Company Number: FR-ROCHE-3231669

PATIENT
  Age: 28 Year
  Sex: Female

DRUGS (5)
  1. PREDNISONE [Suspect]
     Active Substance: PREDNISONE
     Indication: Acquired epidermolysis bullosa
     Dosage: 1 MG/KG, QD
     Route: 065
  2. RITUXIMAB [Suspect]
     Active Substance: RITUXIMAB
     Indication: Acquired epidermolysis bullosa
     Dosage: 1 G (2 INFUSIONS 15 DAYS APART)
     Route: 042
  3. CYCLOSPORINE [Suspect]
     Active Substance: CYCLOSPORINE
     Indication: Acquired epidermolysis bullosa
     Dosage: 5 MG/KG, QD
     Route: 065
  4. METHYLPREDNISOLONE [Suspect]
     Active Substance: METHYLPREDNISOLONE
     Indication: Acquired epidermolysis bullosa
     Dosage: UNK, TWO BOLUSES
     Route: 065
  5. SULFASALAZINE [Concomitant]
     Active Substance: SULFASALAZINE
     Indication: Product used for unknown indication
     Dosage: UNK (HAD TO STOP AFTER 4 WEEKS BECAUSE OF DRUG REACTION WITH EOSINOPHILIA AND SYSTEMIC SYMPTOMS (DRE
     Route: 065

REACTIONS (4)
  - Acute respiratory failure [Fatal]
  - Pneumocystis jirovecii pneumonia [Fatal]
  - Off label use [Fatal]
  - Therapy partial responder [Unknown]
